FAERS Safety Report 5240255-7 (Version None)
Quarter: 2007Q1

REPORT INFORMATION
  Report Type: 
  Country: None (occurrence: None)
  Receive Date: 20061208
  Receipt Date: 20060511
  Transmission Date: 20070707
  Serious: Yes (Other)
  Sender: FDA-Public Use
  Company Number: 2006UW09349

PATIENT
  Age: 47 Year
  Sex: Male
  Weight: 147.41 kg

DRUGS (4)
  1. CRESTOR [Suspect]
     Indication: BLOOD CHOLESTEROL INCREASED
     Dosage: 10 MG DAILY PO
     Route: 048
     Dates: start: 20060301
  2. NORVASC [Concomitant]
  3. CLONIDINE [Concomitant]
  4. COZAAR [Concomitant]

REACTIONS (4)
  - ARTHRALGIA [None]
  - DYSARTHRIA [None]
  - FATIGUE [None]
  - MUSCLE TWITCHING [None]
